FAERS Safety Report 9427821 (Version 1)
Quarter: 2013Q3

REPORT INFORMATION
  Report Type: Report from Study
  Country: US (occurrence: US)
  Receive Date: 20130730
  Receipt Date: 20130730
  Transmission Date: 20140515
  Serious: No
  Sender: FDA-Public Use
  Company Number: US-ABBOTT-12P-163-0968602-00

PATIENT
  Age: 52 Year
  Sex: Female
  Weight: 118.04 kg

DRUGS (5)
  1. NIASPAN (COATED) 500MG [Suspect]
     Indication: HIGH DENSITY LIPOPROTEIN DECREASED
     Dosage: 500MG AT BEDTIME
     Dates: start: 20120814
  2. WELLBUTRIN [Concomitant]
     Indication: PRODUCT USED FOR UNKNOWN INDICATION
  3. METFORMIN [Concomitant]
     Indication: PRODUCT USED FOR UNKNOWN INDICATION
  4. SYNTHYROID [Concomitant]
     Indication: PRODUCT USED FOR UNKNOWN INDICATION
  5. ASA [Concomitant]
     Indication: PRODUCT USED FOR UNKNOWN INDICATION
     Dosage: 15 MINUTES BEFORE THE NIASPAN

REACTIONS (8)
  - Swelling face [Recovered/Resolved]
  - Paraesthesia [Recovered/Resolved]
  - Erythema [Recovered/Resolved]
  - Feeling hot [Recovered/Resolved]
  - Pruritus [Recovered/Resolved]
  - Dry mouth [Recovered/Resolved]
  - Dark circles under eyes [Recovered/Resolved]
  - Lip dry [Recovered/Resolved]
